FAERS Safety Report 6436454-9 (Version None)
Quarter: 2009Q4

REPORT INFORMATION
  Report Type: 
  Country: None (occurrence: None)
  Receive Date: 20091110
  Receipt Date: 20091110
  Transmission Date: 20100525
  Serious: No
  Sender: FDA-Public Use
  Company Number: None

PATIENT
  Age: 61 Year
  Sex: Female
  Weight: 90.9 kg

DRUGS (2)
  1. SUTENT [Suspect]
  2. PACLITAXEL [Suspect]

REACTIONS (2)
  - NAUSEA [None]
  - VOMITING [None]
